FAERS Safety Report 5123516-1 (Version None)
Quarter: 2006Q4

REPORT INFORMATION
  Report Type: 
  Country: None (occurrence: None)
  Receive Date: 20061010
  Receipt Date: 20060928
  Transmission Date: 20070319
  Serious: Yes (Hospitalization)
  Sender: FDA-Public Use
  Company Number: US-JNJFOC-20060906673

PATIENT
  Sex: Female
  Weight: 68.95 kg

DRUGS (14)
  1. REMICADE [Suspect]
     Indication: RHEUMATOID ARTHRITIS
     Route: 042
  2. LOPRESSOR [Concomitant]
  3. FOLIC ACID [Concomitant]
  4. PLAVIX [Concomitant]
  5. ZOCOR [Concomitant]
  6. PROPOXYPHONE [Concomitant]
     Dosage: 3 TABLETS DAILY
  7. MIACALCIN [Concomitant]
     Dosage: 3 TABLETS DAILY
  8. BENICAR [Concomitant]
     Dosage: 3 TABLETS DAILY
  9. POTASSIUM [Concomitant]
     Dosage: 3 TABLETS DAILY
  10. ASPIRIN [Concomitant]
     Dosage: 3 TABLETS DAILY
  11. CENTRUM SILVER MULTIVITAMIN [Concomitant]
  12. NORVASC [Concomitant]
  13. PRILOSEC [Concomitant]
  14. IRON [Concomitant]

REACTIONS (2)
  - CORONARY ARTERY DISEASE [None]
  - LARGE INTESTINAL ULCER [None]
